FAERS Safety Report 7050055-3 (Version None)
Quarter: 2010Q4

REPORT INFORMATION
  Report Type: 
  Country: None (occurrence: None)
  Receive Date: 20101012
  Receipt Date: 20100927
  Transmission Date: 20110411
  Serious: Yes (Congenital Anomaly, Other)
  Sender: FDA-Public Use
  Company Number: AUR-APL-2010-02387

PATIENT
  Age: 26 Month

DRUGS (4)
  1. LISINOPRIL [Suspect]
     Dosage: TRANSPLACENTAL
     Route: 064
  2. METOPROLOL [Suspect]
     Dosage: TRANSPLACENTAL
     Route: 064
  3. DIGOXIN [Suspect]
     Dosage: TRANSPLACENTAL
     Route: 064
  4. NITROGLYCERIN [Suspect]
     Dosage: TRANSPLACENTAL
     Route: 064

REACTIONS (16)
  - ALOPECIA [None]
  - ASTIGMATISM [None]
  - CHOROIDAL COLOBOMA [None]
  - CONGENITAL CORNEAL ANOMALY [None]
  - CONGENITAL EYELID MALFORMATION [None]
  - CONGENITAL OPTIC NERVE ANOMALY [None]
  - DERMOID CYST [None]
  - DYSMORPHISM [None]
  - ENCEPHALOMALACIA [None]
  - MATERNAL DRUGS AFFECTING FOETUS [None]
  - MORNING GLORY SYNDROME [None]
  - RETINAL ANOMALY CONGENITAL [None]
  - RETINAL DEPIGMENTATION [None]
  - STRABISMUS CONGENITAL [None]
  - TENDON CALCIFICATION [None]
  - VISUAL ACUITY REDUCED [None]
